FAERS Safety Report 4624368-6 (Version None)
Quarter: 2005Q1

REPORT INFORMATION
  Report Type: 
  Country: None (occurrence: None)
  Receive Date: 20050330
  Receipt Date: 20050330
  Transmission Date: 20050727
  Serious: Yes (Other)
  Sender: FDA-Public Use
  Company Number: None

PATIENT
  Weight: 62.5964 kg

DRUGS (1)
  1. LISINOPRIL [Suspect]
     Indication: CAROTID ARTERY ANEURYSM
     Dosage: 10 MG BID
     Dates: start: 20041201, end: 20050301

REACTIONS (2)
  - CONSTIPATION [None]
  - HEADACHE [None]
